FAERS Safety Report 9237181 (Version 1)
Quarter: 2013Q2

REPORT INFORMATION
  Report Type: Report from Study
  Country: US (occurrence: US)
  Receive Date: 20130417
  Receipt Date: 20130417
  Transmission Date: 20140414
  Serious: No
  Sender: FDA-Public Use
  Company Number: US-009507513-1303USA003666

PATIENT
  Sex: Female

DRUGS (3)
  1. RIBAVIRIN [Suspect]
     Indication: HEPATITIS C
     Dosage: 3 IN AM AND 4 IN PM
     Route: 048
     Dates: start: 20120423, end: 20120725
  2. BOCEPREVIR [Suspect]
     Indication: HEPATITIS C
     Dosage: UNK
     Route: 048
     Dates: start: 201205
  3. PEGINTERFERON ALFA-2A [Suspect]
     Indication: HEPATITIS C
     Dosage: 180 MICROGRAM, QW
     Route: 058
     Dates: start: 20120423, end: 20120725

REACTIONS (5)
  - Urinary tract infection [Unknown]
  - Influenza like illness [Unknown]
  - Fatigue [Unknown]
  - Platelet count decreased [Unknown]
  - Therapeutic response decreased [Unknown]
